FAERS Safety Report 5497612-3 (Version None)
Quarter: 2007Q4

REPORT INFORMATION
  Report Type: 
  Country: None (occurrence: None)
  Receive Date: 20071025
  Receipt Date: 20061215
  Transmission Date: 20080405
  Serious: No
  Sender: FDA-Public Use
  Company Number: A0631749A

PATIENT
  Age: 57 Year
  Sex: Female

DRUGS (3)
  1. ADVAIR DISKUS 100/50 [Suspect]
     Indication: RESPIRATORY TRACT INFECTION VIRAL
     Dosage: 1PUFF TWICE PER DAY
     Route: 055
     Dates: start: 20061213
  2. LEVOTHYROXINE SODIUM [Concomitant]
  3. MIACALCIN [Concomitant]

REACTIONS (2)
  - ABDOMINAL PAIN UPPER [None]
  - ACCIDENTAL EXPOSURE [None]
